FAERS Safety Report 5398364-8 (Version None)
Quarter: 2007Q3

REPORT INFORMATION
  Report Type: 
  Country: None (occurrence: None)
  Receive Date: 20070726
  Receipt Date: 20070521
  Transmission Date: 20080115
  Serious: No
  Sender: FDA-Public Use
  Company Number: US-AMGEN-KDL225771

PATIENT
  Sex: Male

DRUGS (9)
  1. PROCRIT [Suspect]
     Indication: RENAL FAILURE CHRONIC
     Dates: start: 20070508
  2. VERAPAMIL [Concomitant]
  3. CLONIDINE [Concomitant]
  4. DIOVAN [Concomitant]
  5. FUROSEMIDE [Concomitant]
  6. PHOSLO [Concomitant]
     Dates: end: 20070519
  7. LOVASTATIN [Concomitant]
  8. COUMADIN [Concomitant]
  9. UNSPECIFIED MEDICATION [Concomitant]

REACTIONS (2)
  - OEDEMA PERIPHERAL [None]
  - PAIN IN EXTREMITY [None]
